FAERS Safety Report 11799632 (Version 1)
Quarter: 2015Q4

REPORT INFORMATION
  Report Type: Spontaneous
  Country: FR (occurrence: FR)
  Receive Date: 20151203
  Receipt Date: 20151203
  Transmission Date: 20160305
  Serious: Yes (Life-Threatening)
  Sender: FDA-Public Use
  Company Number: FR-PFIZER INC-2015418019

PATIENT
  Age: 67 Year
  Sex: Female

DRUGS (9)
  1. EFFEXOR LP [Suspect]
     Active Substance: VENLAFAXINE HYDROCHLORIDE
     Indication: POISONING DELIBERATE
     Dosage: 3375 MG (37.5MG X 90), SINGLE
     Route: 048
     Dates: start: 20151108, end: 20151108
  2. TRANQUITAL [Concomitant]
  3. ESOMEPRAZOLE [Concomitant]
     Active Substance: ESOMEPRAZOLE
  4. LERCANIDIPINE HYDROCHLORIDE [Concomitant]
     Active Substance: LERCANIDIPINE HYDROCHLORIDE
  5. SERESTA [Concomitant]
     Active Substance: OXAZEPAM
  6. MACROGOL [Concomitant]
     Active Substance: POLYETHYLENE GLYCOLS
  7. PARACETAMOL [Concomitant]
     Active Substance: ACETAMINOPHEN
  8. ZOPICLONE [Suspect]
     Active Substance: ZOPICLONE
     Indication: POISONING DELIBERATE
     Dosage: 105 MG (7.5 MG X 14), SINGLE
     Route: 048
     Dates: start: 20151108, end: 20151108
  9. COAPROVEL [Concomitant]
     Active Substance: HYDROCHLOROTHIAZIDE\IRBESARTAN

REACTIONS (4)
  - Bradypnoea [Recovered/Resolved]
  - Somnolence [Recovered/Resolved]
  - Intentional overdose [Recovered/Resolved]
  - Hypotension [Recovered/Resolved]

NARRATIVE: CASE EVENT DATE: 20151108
